FAERS Safety Report 9334881 (Version 2)
Quarter: 2013Q4

REPORT INFORMATION
  Report Type: Spontaneous
  Country: US (occurrence: US)
  Receive Date: 20130606
  Receipt Date: 20131008
  Transmission Date: 20140711
  Serious: No
  Sender: FDA-Public Use
  Company Number: US-AMGEN-USASP2013036322

PATIENT
  Age: 75 Year
  Sex: Female
  Weight: 61.22 kg

DRUGS (3)
  1. PROLIA [Suspect]
     Indication: OSTEOPOROSIS POSTMENOPAUSAL
     Dosage: 60 MG, Q6MO
     Route: 058
     Dates: start: 201305
  2. ARIMIDEX [Concomitant]
  3. VITAMIN D                          /00107901/ [Concomitant]
     Dosage: 1000 IU, QD

REACTIONS (3)
  - Stomatitis [Recovering/Resolving]
  - Oral pustule [Unknown]
  - Weight increased [Unknown]
